FAERS Safety Report 5253676-3 (Version None)
Quarter: 2007Q1

REPORT INFORMATION
  Report Type: 
  Country: None (occurrence: None)
  Receive Date: 20070301
  Receipt Date: 20070220
  Transmission Date: 20070707
  Serious: Yes (Other)
  Sender: FDA-Public Use
  Company Number: US-PFIZER INC-2007014913

PATIENT
  Age: 35 Year
  Sex: Male

DRUGS (3)
  1. SERTRALINE [Suspect]
     Indication: DEPRESSION
     Route: 048
  2. BUPROPION HCL [Suspect]
     Indication: DEPRESSION
     Route: 048
  3. VENLAFAXINE HCL [Suspect]
     Indication: DEPRESSION
     Route: 048

REACTIONS (3)
  - INFERTILITY MALE [None]
  - SPERM COUNT DECREASED [None]
  - SPERMATOZOA PROGRESSIVE MOTILITY ABNORMAL [None]
